FAERS Safety Report 6754663-6 (Version None)
Quarter: 2010Q2

REPORT INFORMATION
  Report Type: 
  Country: None (occurrence: None)
  Receive Date: 20100603
  Receipt Date: 20100526
  Transmission Date: 20101027
  Serious: Yes (Hospitalization, Disabling, Other)
  Sender: FDA-Public Use
  Company Number: US-ROCHE-679185

PATIENT
  Sex: Male
  Weight: 104.3 kg

DRUGS (4)
  1. ACCUTANE [Suspect]
     Dosage: FORM: PILLS
     Route: 065
     Dates: start: 20010226
  2. ACCUTANE [Suspect]
     Route: 065
     Dates: start: 20010405
  3. ACCUTANE [Suspect]
     Route: 065
     Dates: start: 20010419, end: 20010701
  4. BENZACLIN [Concomitant]
     Dates: start: 20020117

REACTIONS (21)
  - ALOPECIA [None]
  - ANKYLOSING SPONDYLITIS [None]
  - ANXIETY [None]
  - APHTHOUS STOMATITIS [None]
  - BLOOD CHOLESTEROL INCREASED [None]
  - BLOOD TRIGLYCERIDES INCREASED [None]
  - COLITIS ULCERATIVE [None]
  - DRY SKIN [None]
  - INFLAMMATORY BOWEL DISEASE [None]
  - INTESTINAL HAEMORRHAGE [None]
  - INTESTINAL OBSTRUCTION [None]
  - LIP DRY [None]
  - MIGRAINE [None]
  - MONONEUROPATHY [None]
  - NEPHROLITHIASIS [None]
  - NEUTROPENIA [None]
  - SCAR [None]
  - SLEEP DISORDER [None]
  - URTICARIA [None]
  - WEIGHT DECREASED [None]
  - WEIGHT INCREASED [None]
